FAERS Safety Report 9286776 (Version 1)
Quarter: 2013Q2

REPORT INFORMATION
  Report Type: Spontaneous
  Country: PT (occurrence: None)
  Receive Date: 20130508
  Receipt Date: 20130508
  Transmission Date: 20140414
  Serious: Yes (Other)
  Sender: FDA-Public Use
  Company Number: 1691422

PATIENT
  Age: 50 Year
  Sex: Female

DRUGS (1)
  1. DOCETAXEL [Suspect]
     Indication: BREAST CANCER
     Dosage: 190 MG/M 2 MILLIGRTAM (S) SQ, METER, ( 1 DAY), INTRAVENOUS (NOT OTHERWISE SPECIFIED)
     Route: 042
     Dates: start: 20130410, end: 20130410

REACTIONS (4)
  - Cough [None]
  - Dry throat [None]
  - Cough [None]
  - Blood pressure decreased [None]
